FAERS Safety Report 19263697 (Version 1)
Quarter: 2021Q2

REPORT INFORMATION
  Report Type: Spontaneous
  Country: US (occurrence: US)
  Receive Date: 20210514
  Receipt Date: 20210514
  Transmission Date: 20210717
  Serious: Yes (Death)
  Sender: FDA-Public Use
  Company Number: None

PATIENT
  Age: 63 Year
  Sex: Male

DRUGS (1)
  1. CAPECITABINE TAB 500MG [Suspect]
     Active Substance: CAPECITABINE
     Indication: GASTRIC CANCER
     Dosage: DOSE OR AMOUNT:/FREQUENCY: 14D ON 7
     Route: 048
     Dates: start: 20210428, end: 20210429

REACTIONS (1)
  - Death [None]

NARRATIVE: CASE EVENT DATE: 20210429
